FAERS Safety Report 8052808-1 (Version None)
Quarter: 2012Q1

REPORT INFORMATION
  Report Type: 
  Country: None (occurrence: None)
  Receive Date: 20120118
  Receipt Date: 20120113
  Transmission Date: 20120608
  Serious: Yes (Life-Threatening, Hospitalization)
  Sender: FDA-Public Use
  Company Number: PHEH2012US001409

PATIENT
  Age: 93 Year
  Sex: Female
  Weight: 48.2 kg

DRUGS (2)
  1. TEKTURNA [Suspect]
     Indication: HYPERTENSION
     Dosage: 1 DF PER DAY
     Route: 048
  2. ZESTRIL [Concomitant]

REACTIONS (5)
  - RENAL FAILURE ACUTE [None]
  - FATIGUE [None]
  - POLLAKIURIA [None]
  - BLOOD CREATININE INCREASED [None]
  - ACIDOSIS [None]
